FAERS Safety Report 6290728-3 (Version None)
Quarter: 2009Q3

REPORT INFORMATION
  Report Type: 
  Country: None (occurrence: None)
  Receive Date: 20090729
  Receipt Date: 20090729
  Transmission Date: 20100115
  Serious: No
  Sender: FDA-Public Use
  Company Number: None

PATIENT
  Age: 56 Year
  Sex: Male
  Weight: 96.16 kg

DRUGS (1)
  1. DICLOFENAC SODIUM [Suspect]
     Indication: PAIN
     Dosage: 75 MG BID PO
     Route: 048
     Dates: start: 20090721, end: 20090723

REACTIONS (3)
  - NAUSEA [None]
  - RASH [None]
  - VOMITING [None]
